FAERS Safety Report 4843785-2 (Version None)
Quarter: 2005Q4

REPORT INFORMATION
  Report Type: 
  Country: None (occurrence: None)
  Receive Date: 20051202
  Receipt Date: 20051123
  Transmission Date: 20060501
  Serious: Yes (Other)
  Sender: FDA-Public Use
  Company Number: US-JNJFOC-20051105946

PATIENT
  Sex: Male
  Weight: 72.58 kg

DRUGS (4)
  1. REMICADE [Suspect]
     Route: 042
  2. REMICADE [Suspect]
     Indication: CROHN'S DISEASE
     Route: 042
  3. QUESTRAN [Concomitant]
  4. PENTASA [Concomitant]
     Indication: CROHN'S DISEASE

REACTIONS (2)
  - CONDITION AGGRAVATED [None]
  - MALARIA [None]
